FAERS Safety Report 6690066-0 (Version None)
Quarter: 2010Q2

REPORT INFORMATION
  Report Type: 
  Country: None (occurrence: None)
  Receive Date: 20100421
  Receipt Date: 20100413
  Transmission Date: 20101027
  Serious: Yes (Hospitalization)
  Sender: FDA-Public Use
  Company Number: PHHO2010US05332

PATIENT
  Sex: Male

DRUGS (7)
  1. MYFORTIC [Suspect]
     Indication: RENAL TRANSPLANT
     Dosage: 1440  MG/DAY
     Route: 048
     Dates: start: 20090904
  2. BELATACEPT [Suspect]
     Indication: RENAL TRANSPLANT
     Dosage: UNK
     Route: 042
     Dates: start: 20020807
  3. PREDNISONE [Concomitant]
  4. BACTRIM [Concomitant]
  5. DIOVAN [Concomitant]
  6. EFFEXOR XR [Concomitant]
  7. PROTONIX [Concomitant]

REACTIONS (8)
  - GLOMERULOSCLEROSIS [None]
  - KIDNEY FIBROSIS [None]
  - NEPHRECTOMY [None]
  - NEPHROSCLEROSIS [None]
  - PYELOCALIECTASIS [None]
  - RENAL ATROPHY [None]
  - RENAL CELL CARCINOMA [None]
  - RENAL CYST [None]
